FAERS Safety Report 6180166-6 (Version None)
Quarter: 2009Q2

REPORT INFORMATION
  Report Type: 
  Country: None (occurrence: None)
  Receive Date: 20090505
  Receipt Date: 20090427
  Transmission Date: 20091009
  Serious: Yes (Hospitalization)
  Sender: FDA-Public Use
  Company Number: BR-WYE-H09144209

PATIENT

DRUGS (1)
  1. ADVIL EXTRA ALIVIO [Suspect]
     Dosage: UNKNOWN
     Route: 048

REACTIONS (5)
  - DYSPNOEA [None]
  - EYELID OEDEMA [None]
  - HYPERSENSITIVITY [None]
  - LIP OEDEMA [None]
  - PRURITUS GENERALISED [None]
